FAERS Safety Report 11875865 (Version 4)
Quarter: 2016Q3

REPORT INFORMATION
  Report Type: Spontaneous
  Country: US (occurrence: US)
  Receive Date: 20151229
  Receipt Date: 20160809
  Transmission Date: 20161109
  Serious: Yes (Other)
  Sender: FDA-Public Use
  Company Number: US-009507513-1512USA013112

PATIENT
  Sex: Male
  Weight: 88.44 kg

DRUGS (1)
  1. PROPECIA [Suspect]
     Active Substance: FINASTERIDE
     Indication: ANDROGENETIC ALOPECIA
     Dosage: 1 MG, UNKNOWN
     Route: 048
     Dates: start: 201412, end: 201505

REACTIONS (7)
  - Testicular torsion [Unknown]
  - Loss of libido [Not Recovered/Not Resolved]
  - Abdominal pain lower [Recovered/Resolved]
  - Cognitive disorder [Not Recovered/Not Resolved]
  - Sexual dysfunction [Not Recovered/Not Resolved]
  - Testicular pain [Not Recovered/Not Resolved]
  - Erectile dysfunction [Unknown]

NARRATIVE: CASE EVENT DATE: 20150214
